FAERS Safety Report 10152739 (Version 3)
Quarter: 2014Q2

REPORT INFORMATION
  Report Type: Report from Study
  Country: JP (occurrence: JP)
  Receive Date: 20140505
  Receipt Date: 20140519
  Transmission Date: 20141212
  Serious: Yes (Hospitalization)
  Sender: FDA-Public Use
  Company Number: JP-JNJFOC-20130611842

PATIENT
  Age: 65 Year
  Sex: Female
  Weight: 46 kg

DRUGS (20)
  1. TRAMCET [Suspect]
     Indication: PAIN
     Dosage: FREQUENCY: 3 PER 1 DAY
     Route: 048
     Dates: start: 20130422, end: 20140126
  2. TRAMCET [Suspect]
     Indication: PAIN
     Dosage: FREQUENCY: 2 PER 1 DAY
     Route: 048
     Dates: start: 20130325, end: 20130421
  3. TRAMCET [Suspect]
     Indication: PAIN
     Dosage: FREQUENCY: 1 PER 1 DAY
     Route: 048
     Dates: start: 20130313, end: 20130324
  4. TRAMCET [Suspect]
     Indication: PAIN
     Dosage: FREQUENCY: 1 PER 1 DAY
     Route: 048
     Dates: start: 20130213, end: 20130215
  5. TRAMCET [Suspect]
     Indication: PAIN
     Route: 048
     Dates: start: 20140127
  6. CELECOX [Suspect]
     Indication: PAIN
     Dosage: FREQUENCY : ONE IN ONE DAY
     Route: 048
     Dates: end: 20130617
  7. OPALMON [Concomitant]
     Indication: PAIN
     Dosage: FREQUENCY: 1 PER 1 DAY
     Route: 048
  8. LYRICA [Concomitant]
     Indication: PAIN
     Dosage: FREQUENCY: 1 PER 1 DAY
     Route: 048
     Dates: end: 20130826
  9. PRIMPERAN [Concomitant]
     Indication: PROPHYLAXIS
     Dosage: FREQUENCY: 1 PER 1 DAY
     Route: 048
     Dates: start: 20130313, end: 20130324
  10. PRIMPERAN [Concomitant]
     Indication: PROPHYLAXIS
     Dosage: FREQUENCY: 1 PER 1 DAY
     Route: 048
     Dates: start: 20130213, end: 20130215
  11. PRIMPERAN [Concomitant]
     Indication: PROPHYLAXIS
     Dosage: FREQUENCY: 1 PER 1 DAY
     Route: 048
     Dates: start: 20130325, end: 20130421
  12. PRIMPERAN [Concomitant]
     Indication: PROPHYLAXIS
     Dosage: FREQUENCY: 1 PER 1 DAY
     Route: 048
     Dates: start: 20130422, end: 20140126
  13. PRIMPERAN [Concomitant]
     Indication: PROPHYLAXIS
     Route: 048
     Dates: start: 20140127
  14. ADALAT CR [Concomitant]
     Indication: HYPERTENSION
     Dosage: FREQUENCY: 1 PER 1 DAY
     Route: 048
  15. CRESTOR [Concomitant]
     Indication: HYPERCHOLESTEROLAEMIA
     Dosage: FREQUENCY: 1 PER 1 DAY
     Route: 048
  16. ACTOS [Concomitant]
     Indication: TYPE 2 DIABETES MELLITUS
     Dosage: FREQUENCY: 1 PER 1 DAY
     Route: 048
  17. MAGMITT [Concomitant]
     Indication: PROPHYLAXIS
     Dosage: FREQUENCY: 1 PER 1 DAY
     Route: 048
  18. AVAPRO [Concomitant]
     Indication: HYPERTENSION
     Dosage: FREQUENCY: 1 PER 1 DAY
     Route: 048
  19. GLACTIV [Concomitant]
     Indication: TYPE 2 DIABETES MELLITUS
     Dosage: FREQUENCY: 1 PER 1 DAY
     Route: 048
  20. LANTUS [Concomitant]
     Indication: TYPE 2 DIABETES MELLITUS
     Dosage: FREQUENCY: 1 PER 1 DAY
     Route: 065

REACTIONS (2)
  - Gastric ulcer [Recovering/Resolving]
  - Gastric ulcer [Recovering/Resolving]
